FAERS Safety Report 7327753-7 (Version None)
Quarter: 2011Q1

REPORT INFORMATION
  Report Type: 
  Country: None (occurrence: None)
  Receive Date: 20110303
  Receipt Date: 20101122
  Transmission Date: 20110831
  Serious: Yes (Other)
  Sender: FDA-Public Use
  Company Number: US-JNJFOC-M-730015

PATIENT
  Age: 63 Year
  Sex: Female

DRUGS (4)
  1. LITHIUM CARBONATE [Interacting]
     Indication: BIPOLAR I DISORDER
     Dosage: AVERAGE DOSAGE: 1,165 MG/DAY; RANGE: 600-1,800 MG/DAY
     Route: 065
  2. HALDOL [Suspect]
     Indication: MANIA
     Route: 048
     Dates: start: 19721017
  3. HALOPERIDOL [Suspect]
     Indication: BIPOLAR I DISORDER
     Dosage: AVERAGE DOSAGE: 24 MG/DAY; RANGE: 10 TO 40 MG/DAY
     Route: 065
  4. HALDOL [Suspect]
     Route: 030
     Dates: start: 19721017

REACTIONS (13)
  - AMNESIA [None]
  - DEPRESSED LEVEL OF CONSCIOUSNESS [None]
  - ASTHENIA [None]
  - DYSKINESIA [None]
  - PYREXIA [None]
  - DRUG INTERACTION [None]
  - ATAXIA [None]
  - PSYCHOMOTOR SKILLS IMPAIRED [None]
  - LETHARGY [None]
  - COGWHEEL RIGIDITY [None]
  - TREMOR [None]
  - MUSCLE RIGIDITY [None]
  - HYPERREFLEXIA [None]
